FAERS Safety Report 7216279-7 (Version None)
Quarter: 2011Q1

REPORT INFORMATION
  Report Type: 
  Country: None (occurrence: None)
  Receive Date: 20110107
  Receipt Date: 20110103
  Transmission Date: 20110831
  Serious: Yes (Death, Hospitalization)
  Sender: FDA-Public Use
  Company Number: FR-JNJFOC-20110100449

PATIENT
  Age: 77 Year
  Sex: Male

DRUGS (1)
  1. REMICADE [Suspect]
     Indication: PSORIASIS
     Route: 042

REACTIONS (8)
  - PULMONARY TUBERCULOSIS [None]
  - SEPSIS [None]
  - STREPTOCOCCUS TEST POSITIVE [None]
  - LUNG DISORDER [None]
  - BLOOD CULTURE POSITIVE [None]
  - MULTI-ORGAN FAILURE [None]
  - KLEBSIELLA INFECTION [None]
  - ACUTE RESPIRATORY DISTRESS SYNDROME [None]
